FAERS Safety Report 10011702 (Version 3)
Quarter: 2014Q1

REPORT INFORMATION
  Report Type: Spontaneous
  Country: US (occurrence: None)
  Receive Date: 20140312
  Receipt Date: 20140327
  Transmission Date: 20141002
  Serious: Yes (Death, Other)
  Sender: FDA-Public Use
  Company Number: UTC-045393

PATIENT
  Age: 38 Year
  Sex: Female
  Weight: 64.5 kg

DRUGS (3)
  1. REMODULIN [Suspect]
     Indication: COR PULMONALE CHRONIC
     Dosage: 90.72 UG/KG (0.063 UG/KG, 1 IN 1 MIN)?
     Route: 041
     Dates: start: 20100928
  2. ADCIRCA (TADALAFIL) [Concomitant]
  3. TRACLEER (BOSENTAN) [Concomitant]

REACTIONS (5)
  - Cardiac failure [None]
  - Bacteraemia [None]
  - Septic shock [None]
  - Brain abscess [None]
  - Ventricular tachycardia [None]
